FAERS Safety Report 8474636-5 (Version None)
Quarter: 2012Q2

REPORT INFORMATION
  Report Type: 
  Country: None (occurrence: None)
  Receive Date: 20120628
  Receipt Date: 20120619
  Transmission Date: 20120825
  Serious: Yes (Other)
  Sender: FDA-Public Use
  Company Number: CA-JNJFOC-20120609382

PATIENT
  Sex: Male
  Weight: 94.5 kg

DRUGS (4)
  1. VENLAFAXINE [Concomitant]
     Route: 065
  2. REMICADE [Suspect]
     Indication: CROHN'S DISEASE
     Route: 042
     Dates: start: 20070628
  3. CLONIDINE [Concomitant]
     Route: 065
  4. PERINDOPRIL ERBUMINE [Concomitant]
     Route: 065

REACTIONS (1)
  - NEPHROLITHIASIS [None]
